FAERS Safety Report 9286613 (Version 1)
Quarter: 2013Q2

REPORT INFORMATION
  Report Type: Spontaneous
  Country: GB (occurrence: GB)
  Receive Date: 20130513
  Receipt Date: 20130513
  Transmission Date: 20140414
  Serious: Yes (Hospitalization)
  Sender: FDA-Public Use
  Company Number: PHHY2013GB044953

PATIENT
  Age: 51 Year
  Sex: Male
  Weight: 85 kg

DRUGS (7)
  1. OXALIPLATIN [Suspect]
     Indication: COLON CANCER METASTATIC
     Dosage: 170 MG EVERY 2 WEEKS
     Route: 042
     Dates: start: 20121219
  2. LEUCOVORIN CALCIUM [Suspect]
     Indication: VITAMIN SUPPLEMENTATION
     Route: 042
     Dates: start: 20121219
  3. 5-FLUOROURACIL [Suspect]
     Indication: COLON CANCER METASTATIC
     Dosage: 800 MG, DAILY
     Route: 040
     Dates: start: 20121219
  4. 5-FLUOROURACIL [Suspect]
     Dosage: 4700 MG EVERY 2 WEEKS
     Route: 042
     Dates: start: 20121219
  5. TIVOZANIB [Suspect]
     Indication: COLON CANCER METASTATIC
     Dosage: 1.5 MG DAILY, 1.5 MG EVERY 21 DAYS WITH A WEEK OFF
     Route: 048
     Dates: start: 20121219
  6. DEXAMETHASONE [Concomitant]
     Dates: start: 201301
  7. TINZAPARIN [Concomitant]
     Dates: start: 20130128

REACTIONS (4)
  - Sinus tachycardia [Recovering/Resolving]
  - Sepsis [Not Recovered/Not Resolved]
  - Dyspnoea [Recovering/Resolving]
  - Pyrexia [Not Recovered/Not Resolved]
